FAERS Safety Report 8131826-9 (Version None)
Quarter: 2012Q1

REPORT INFORMATION
  Report Type: 
  Country: None (occurrence: None)
  Receive Date: 20120208
  Receipt Date: 20120124
  Transmission Date: 20120608
  Serious: Yes (Life-Threatening, Hospitalization, Other)
  Sender: FDA-Public Use
  Company Number: 2012P1003211

PATIENT
  Age: 48 Year
  Sex: Female

DRUGS (1)
  1. LAMOTRIGINE [Suspect]
     Indication: INTENTIONAL OVERDOSE
     Dosage: 7500 MG;X1;

REACTIONS (14)
  - LOSS OF CONSCIOUSNESS [None]
  - HYPOXIC-ISCHAEMIC ENCEPHALOPATHY [None]
  - BRAIN OEDEMA [None]
  - GRAND MAL CONVULSION [None]
  - NODAL ARRHYTHMIA [None]
  - MYOCLONUS [None]
  - BLOOD CALCIUM DECREASED [None]
  - BLOOD GLUCOSE INCREASED [None]
  - SINUS TACHYCARDIA [None]
  - BLOOD POTASSIUM DECREASED [None]
  - STATUS EPILEPTICUS [None]
  - NEUROTOXICITY [None]
  - CARDIAC ARREST [None]
  - CARDIOTOXICITY [None]
